FAERS Safety Report 21770275 (Version 1)
Quarter: 2022Q4

REPORT INFORMATION
  Report Type: Spontaneous
  Country: FR (occurrence: FR)
  Receive Date: 20221223
  Receipt Date: 20221223
  Transmission Date: 20230113
  Serious: Yes (Other)
  Sender: FDA-Public Use
  Company Number: None

PATIENT
  Age: 61 Year
  Sex: Male

DRUGS (2)
  1. CARBOPLATIN [Suspect]
     Active Substance: CARBOPLATIN
     Indication: Bronchial carcinoma
     Dosage: UNIT DOSE : 470 MG, THERAPY END DATE : NASK
     Route: 065
     Dates: start: 20220709
  2. GEMCITABINE HYDROCHLORIDE [Suspect]
     Active Substance: GEMCITABINE HYDROCHLORIDE
     Indication: Bronchial carcinoma
     Dosage: FREQUENCY TIME : 2 TOTAL, UNIT DOSE : 1250 MG/M2, DURATION : 8 DAYS
     Route: 065
     Dates: start: 20221116, end: 20221124

REACTIONS (3)
  - Acute generalised exanthematous pustulosis [Recovering/Resolving]
  - Thrombocytopenia [Recovering/Resolving]
  - Neutropenia [Recovering/Resolving]

NARRATIVE: CASE EVENT DATE: 20221101
